FAERS Safety Report 13909296 (Version 1)
Quarter: 2017Q3

REPORT INFORMATION
  Report Type: Report from Study
  Country: US (occurrence: US)
  Receive Date: 20170828
  Receipt Date: 20170828
  Transmission Date: 20171127
  Serious: Yes (Life-Threatening)
  Sender: FDA-Public Use
  Company Number: US-ROCHE-1982614

PATIENT
  Age: 73 Year
  Sex: Male

DRUGS (1)
  1. ZELBORAF [Suspect]
     Active Substance: VEMURAFENIB
     Indication: MALIGNANT MELANOMA
     Dosage: ONGOING NO
     Route: 065
     Dates: end: 20170819

REACTIONS (5)
  - Arterial occlusive disease [Unknown]
  - Dyspnoea [Unknown]
  - Throat tightness [Unknown]
  - Ill-defined disorder [Unknown]
  - Road traffic accident [Unknown]

NARRATIVE: CASE EVENT DATE: 20170801
